FAERS Safety Report 5779706-8 (Version None)
Quarter: 2008Q2

REPORT INFORMATION
  Report Type: 
  Country: None (occurrence: None)
  Receive Date: 20080617
  Receipt Date: 20080603
  Transmission Date: 20081010
  Serious: Yes (Other)
  Sender: FDA-Public Use
  Company Number: 2008BI014207

PATIENT
  Age: 37 Year
  Sex: Female
  Weight: 60 kg

DRUGS (1)
  1. TYSABRI [Suspect]
     Indication: MULTIPLE SCLEROSIS
     Dosage: 300 MG;QM;IV
     Route: 042
     Dates: start: 20080320, end: 20080602

REACTIONS (5)
  - ASTHENIA [None]
  - BRADYCARDIA [None]
  - DIZZINESS [None]
  - DYSPHONIA [None]
  - INFUSION RELATED REACTION [None]
